FAERS Safety Report 9568002 (Version 1)
Quarter: 2013Q3

REPORT INFORMATION
  Report Type: Spontaneous
  Country: US (occurrence: US)
  Receive Date: 20130930
  Receipt Date: 20130930
  Transmission Date: 20140515
  Serious: No
  Sender: FDA-Public Use
  Company Number: US-AMGEN-USASP2013056603

PATIENT
  Age: 60 Year
  Sex: Female
  Weight: 60.77 kg

DRUGS (16)
  1. ENBREL [Suspect]
     Indication: PRODUCT USED FOR UNKNOWN INDICATION
     Dosage: 50 MG, QWK
     Route: 058
  2. METHOTREXATE [Suspect]
     Indication: PRODUCT USED FOR UNKNOWN INDICATION
     Dosage: 1 G, UNK
     Route: 065
  3. LEVOTHYROXIN [Concomitant]
     Dosage: 500 MUG, UNK
  4. GABAPENTIN [Concomitant]
     Dosage: 400 MG, UNK
  5. NEXIUM                             /01479302/ [Concomitant]
     Dosage: 40 MG, UNK
  6. XALATAN [Concomitant]
     Dosage: SOL 0.005 %, UNK
  7. AMELIOR PLUS HCT [Concomitant]
     Dosage: UNK 5-50
  8. BUSPAR [Concomitant]
     Dosage: 30 MG, UNK
  9. B12                                /00056201/ [Concomitant]
     Dosage: 1 MG, UNK
  10. HYOMAX [Concomitant]
     Dosage: 0.125 MG, UNK
  11. ATROVENT [Concomitant]
     Dosage: SOL 0.03 %, UNK
     Route: 045
  12. VESICARE [Concomitant]
     Dosage: 5 MG, UNK
  13. FOLIC ACID [Concomitant]
     Dosage: UNK
  14. AMBIEN [Concomitant]
     Dosage: 10 MG, UNK
  15. TRAMADOL HCL [Concomitant]
     Dosage: 100 MG, UNK
  16. ELESTRIN [Concomitant]
     Dosage: UNK

REACTIONS (3)
  - Rhinorrhoea [Unknown]
  - Lacrimation increased [Unknown]
  - Hypersensitivity [Unknown]
